FAERS Safety Report 9715424 (Version 1)
Quarter: 2013Q4

REPORT INFORMATION
  Report Type: Spontaneous
  Country: US (occurrence: US)
  Receive Date: 20131127
  Receipt Date: 20131127
  Transmission Date: 20140711
  Serious: Yes (Other)
  Sender: FDA-Public Use
  Company Number: US-JNJFOC-20131109195

PATIENT
  Sex: Female
  Weight: 108.86 kg

DRUGS (6)
  1. BENADRYL [Suspect]
     Indication: MULTIPLE ALLERGIES
     Route: 048
  2. PRISTIQ [Suspect]
     Indication: DEPRESSION
     Route: 065
  3. ZANAFLEX [Suspect]
     Indication: HYPOTONIA
     Route: 065
  4. LASIX [Suspect]
     Indication: FLUID RETENTION
     Route: 048
  5. VISTARIL [Suspect]
     Indication: ANXIETY
     Dosage: 50 MG ORAL CAPSULE 3 TIMES A DAY AND 2 CAPSULES OF 50 MG DURING BED TIME
     Route: 065
  6. MECLIZINE [Suspect]
     Indication: DIZZINESS
     Dosage: AS NEEDED
     Route: 065

REACTIONS (4)
  - Diabetes mellitus [Unknown]
  - Blood cholesterol abnormal [Recovered/Resolved]
  - Dry throat [Not Recovered/Not Resolved]
  - Hunger [Unknown]
